FAERS Safety Report 9188203 (Version 1)
Quarter: 2013Q1

REPORT INFORMATION
  Report Type: Report from Study
  Country: US (occurrence: US)
  Receive Date: 20130325
  Receipt Date: 20130325
  Transmission Date: 20140127
  Serious: Yes (Death)
  Sender: FDA-Public Use
  Company Number: US-ROCHE-1067732

PATIENT
  Age: 81 Year
  Sex: Male
  Weight: 57.2 kg

DRUGS (1)
  1. CAPECITABINE [Suspect]
     Indication: COLORECTAL CANCER METASTATIC
     Route: 048
     Dates: start: 20120427

REACTIONS (2)
  - Hypersomnia [Not Recovered/Not Resolved]
  - Disease progression [Fatal]
